FAERS Safety Report 5680027-2 (Version None)
Quarter: 2008Q1

REPORT INFORMATION
  Report Type: 
  Country: None (occurrence: None)
  Receive Date: 20080325
  Receipt Date: 20080325
  Transmission Date: 20080703
  Serious: Yes (Other)
  Sender: FDA-Public Use
  Company Number: None

PATIENT
  Age: 68 Year
  Sex: Female
  Weight: 81.1939 kg

DRUGS (1)
  1. AMOXICILLIN [Suspect]
     Indication: BRONCHITIS
     Dosage: TWO CAPSULES TWICE/DAY TWO TIMES
     Dates: start: 20080219, end: 20080228

REACTIONS (1)
  - URTICARIA [None]
